FAERS Safety Report 13835052 (Version 1)
Quarter: 2017Q3

REPORT INFORMATION
  Report Type: Spontaneous
  Country: US (occurrence: US)
  Receive Date: 20170804
  Receipt Date: 20170804
  Transmission Date: 20171127
  Serious: Yes (Life-Threatening, Hospitalization, Other)
  Sender: FDA-Public Use
  Company Number: US-AUROBINDO-AUR-APL-2016-15516

PATIENT
  Age: 53 Year
  Sex: Male

DRUGS (1)
  1. AMLODIPINE 10 MG [Suspect]
     Active Substance: AMLODIPINE BESYLATE
     Indication: PRODUCT USED FOR UNKNOWN INDICATION
     Dosage: 10 MG, UNK
     Route: 048

REACTIONS (5)
  - Brain herniation [Unknown]
  - Intentional overdose [Unknown]
  - Hypotension [Unknown]
  - Cardiac arrest [Unknown]
  - Brain injury [Unknown]
